FAERS Safety Report 18646310 (Version 2)
Quarter: 2021Q2

REPORT INFORMATION
  Report Type: Spontaneous
  Country: US (occurrence: US)
  Receive Date: 20201222
  Receipt Date: 20210614
  Transmission Date: 20210717
  Serious: Yes (Other)
  Sender: FDA-Public Use
  Company Number: US-GILEAD-2020-0509313

PATIENT
  Sex: Male
  Weight: 77.1 kg

DRUGS (90)
  1. ACYCLOVIR [ACICLOVIR] [Concomitant]
     Active Substance: ACYCLOVIR
  2. ATAZANAVIR. [Concomitant]
     Active Substance: ATAZANAVIR
  3. CALCITRIOL. [Concomitant]
     Active Substance: CALCITRIOL
  4. CEFTRIAXONE. [Concomitant]
     Active Substance: CEFTRIAXONE
  5. CLARITHROMYCIN. [Concomitant]
     Active Substance: CLARITHROMYCIN
  6. DEXAMETHASONE. [Concomitant]
     Active Substance: DEXAMETHASONE
  7. DEXTROSE. [Concomitant]
     Active Substance: DEXTROSE
  8. FLUCONAZOLE. [Concomitant]
     Active Substance: FLUCONAZOLE
  9. FUROSEMIDE. [Concomitant]
     Active Substance: FUROSEMIDE
  10. NICOTINE. [Concomitant]
     Active Substance: NICOTINE
  11. SULFAMETHOXAZOLE [Concomitant]
     Active Substance: SULFAMETHOXAZOLE
  12. THIAMINE. [Concomitant]
     Active Substance: THIAMINE
  13. TIVICAY [Concomitant]
     Active Substance: DOLUTEGRAVIR SODIUM
  14. BENZONATATE. [Concomitant]
     Active Substance: BENZONATATE
  15. CLOTRIMAZOLE. [Concomitant]
     Active Substance: CLOTRIMAZOLE
  16. DAPSONE. [Concomitant]
     Active Substance: DAPSONE
  17. DICLOFENAC [Concomitant]
     Active Substance: DICLOFENAC
  18. EPOETIN ALFA [Concomitant]
     Active Substance: ERYTHROPOIETIN
  19. ERGOCALCIFEROL. [Concomitant]
     Active Substance: ERGOCALCIFEROL
  20. RANITIDINE. [Concomitant]
     Active Substance: RANITIDINE
  21. ROSUVASTATIN. [Concomitant]
     Active Substance: ROSUVASTATIN
  22. SODIUM BICARBONATE. [Concomitant]
     Active Substance: SODIUM BICARBONATE
  23. SODIUM CHLORIDE. [Concomitant]
     Active Substance: SODIUM CHLORIDE
  24. TRUVADA [Suspect]
     Active Substance: EMTRICITABINE\TENOFOVIR DISOPROXIL FUMARATE
     Indication: HIV INFECTION
     Dosage: UNK
     Route: 048
     Dates: start: 2004
  25. COMBIVIR [Concomitant]
     Active Substance: LAMIVUDINE\ZIDOVUDINE
  26. ESOMEPRAZOLE. [Concomitant]
     Active Substance: ESOMEPRAZOLE MAGNESIUM
  27. LEVOFLOXACIN. [Concomitant]
     Active Substance: LEVOFLOXACIN
  28. ONDANSETRON [Concomitant]
     Active Substance: ONDANSETRON
  29. PROMETHAZINE [Concomitant]
     Active Substance: PROMETHAZINE HYDROCHLORIDE
  30. PYRAZINAMIDE. [Concomitant]
     Active Substance: PYRAZINAMIDE
  31. RISPERIDONE. [Concomitant]
     Active Substance: RISPERIDONE
  32. SERTRALINE [Concomitant]
     Active Substance: SERTRALINE HYDROCHLORIDE
  33. SODIUM FERRIC GLUCONATE COMPLEX. [Concomitant]
     Active Substance: SODIUM FERRIC GLUCONATE COMPLEX
  34. AZITHROMYCIN ANHYDROUS. [Concomitant]
     Active Substance: AZITHROMYCIN ANHYDROUS
  35. CEFEPIME [Concomitant]
     Active Substance: CEFEPIME HYDROCHLORIDE
  36. CIPROXIN [CIPROFLOXACIN] [Concomitant]
     Active Substance: CIPROFLOXACIN
  37. DEXTROMETHORPHAN [Concomitant]
     Active Substance: DEXTROMETHORPHAN
  38. GUAIFENESIN. [Concomitant]
     Active Substance: GUAIFENESIN
  39. HEPARIN SODIUM. [Concomitant]
     Active Substance: HEPARIN SODIUM
  40. INSULIN HUMAN [Concomitant]
     Active Substance: INSULIN HUMAN
  41. ISONIAZID. [Concomitant]
     Active Substance: ISONIAZID
  42. LAMIVUDINE. [Concomitant]
     Active Substance: LAMIVUDINE
  43. LINEZOLID. [Concomitant]
     Active Substance: LINEZOLID
  44. MAGNESIUM SULFATE. [Concomitant]
     Active Substance: MAGNESIUM SULFATE
  45. MEGESTROL [Concomitant]
     Active Substance: MEGESTROL
  46. NALOXONE [Concomitant]
     Active Substance: NALOXONE
  47. PYRIDOXINE [Concomitant]
     Active Substance: PYRIDOXINE
  48. TRIAMCINOLONE [Concomitant]
     Active Substance: TRIAMCINOLONE
  49. TRUVADA [Suspect]
     Active Substance: EMTRICITABINE\TENOFOVIR DISOPROXIL FUMARATE
     Dosage: UNK
     Route: 065
     Dates: start: 2006, end: 2015
  50. EPIVIR [Concomitant]
     Active Substance: LAMIVUDINE
  51. RETROVIR [Concomitant]
     Active Substance: ZIDOVUDINE
  52. CLINDAMYCIN. [Concomitant]
     Active Substance: CLINDAMYCIN
  53. EFAVIRENZ. [Concomitant]
     Active Substance: EFAVIRENZ
  54. FOLIC ACID. [Concomitant]
     Active Substance: FOLIC ACID
  55. LIDOCAINE. [Concomitant]
     Active Substance: LIDOCAINE
  56. PHENYLEPHRINE [Concomitant]
     Active Substance: PHENYLEPHRINE HYDROCHLORIDE
  57. SULFAMETHOXAZOLE;TRIMETHOPRIM [Concomitant]
     Active Substance: SULFAMETHOXAZOLE\TRIMETHOPRIM
  58. DOCUSATE SODIUM. [Concomitant]
     Active Substance: DOCUSATE SODIUM
  59. EMTRICITABINE;TENOFOVIR [Concomitant]
     Active Substance: EMTRICITABINE\TENOFOVIR
  60. FLUMAZENIL. [Concomitant]
     Active Substance: FLUMAZENIL
  61. IMIQUIMOD. [Concomitant]
     Active Substance: IMIQUIMOD
  62. INSULIN ASPART [Concomitant]
     Active Substance: INSULIN ASPART
  63. IPRATROPIUM [Concomitant]
     Active Substance: IPRATROPIUM
  64. MIDAZOLAM. [Concomitant]
     Active Substance: MIDAZOLAM
  65. MUPIROCIN. [Concomitant]
     Active Substance: MUPIROCIN
  66. NORMAL SALINE [Concomitant]
     Active Substance: SODIUM CHLORIDE
  67. POTASSIUM CHLORIDE. [Concomitant]
     Active Substance: POTASSIUM CHLORIDE
  68. PREDNISONE. [Concomitant]
     Active Substance: PREDNISONE
  69. RIFABUTIN. [Concomitant]
     Active Substance: RIFABUTIN
  70. SENNOSIDES. [Concomitant]
     Active Substance: SENNOSIDES
  71. SODIUM POLYSTYRENE SULFONATE. [Concomitant]
     Active Substance: SODIUM POLYSTYRENE SULFONATE
  72. ZIDOVUDINE. [Concomitant]
     Active Substance: ZIDOVUDINE
  73. TRUVADA [Suspect]
     Active Substance: EMTRICITABINE\TENOFOVIR DISOPROXIL FUMARATE
     Dosage: UNK
     Route: 065
     Dates: start: 2006, end: 2016
  74. REYATAZ [Concomitant]
     Active Substance: ATAZANAVIR SULFATE
  75. AMOXICILLIN + CLAVULANIC ACID [Concomitant]
     Active Substance: AMOXICILLIN\CLAVULANIC ACID
  76. CYCLOBENZAPRINE. [Concomitant]
     Active Substance: CYCLOBENZAPRINE
  77. DIPHENHYDRAMINE. [Concomitant]
     Active Substance: DIPHENHYDRAMINE
  78. HYDROCHLOROTHIAZIDE. [Concomitant]
     Active Substance: HYDROCHLOROTHIAZIDE
  79. NITROGLYCERIN. [Concomitant]
     Active Substance: NITROGLYCERIN
  80. PIPERACILLIN. [Concomitant]
     Active Substance: PIPERACILLIN SODIUM
  81. SENNA [Concomitant]
     Active Substance: SENNA LEAF\SENNOSIDES\SENNOSIDES A AND B
  82. VANCOMYCIN [Concomitant]
     Active Substance: VANCOMYCIN
  83. WARFARIN SODIUM. [Concomitant]
     Active Substance: WARFARIN SODIUM
  84. NORVIR [Concomitant]
     Active Substance: RITONAVIR
  85. ALBUTEROL [SALBUTAMOL] [Concomitant]
     Active Substance: ALBUTEROL
  86. ALTEPLASE. [Concomitant]
     Active Substance: ALTEPLASE
  87. DOXYCYCLINE. [Concomitant]
     Active Substance: DOXYCYCLINE
  88. ETHAMBUTOL [Concomitant]
     Active Substance: ETHAMBUTOL HYDROCHLORIDE
  89. MELATONIN [Concomitant]
     Active Substance: MELATONIN
  90. RITONAVIR. [Concomitant]
     Active Substance: RITONAVIR

REACTIONS (9)
  - Hypertension [Not Recovered/Not Resolved]
  - Gait disturbance [Unknown]
  - Renal impairment [Not Recovered/Not Resolved]
  - Emotional distress [Unknown]
  - Sleep disorder [Unknown]
  - Anxiety [Unknown]
  - Renal failure [Unknown]
  - Anhedonia [Unknown]
  - Pain [Unknown]

NARRATIVE: CASE EVENT DATE: 2011
